FAERS Safety Report 22981672 (Version 3)
Quarter: 2023Q4

REPORT INFORMATION
  Report Type: Report from Study
  Country: CA (occurrence: CA)
  Receive Date: 20230925
  Receipt Date: 20231204
  Transmission Date: 20240109
  Serious: Yes (Hospitalization, Other)
  Sender: FDA-Public Use
  Company Number: CA-TAKEDA-2022TUS069839

PATIENT
  Sex: Male

DRUGS (1)
  1. IXAZOMIB [Suspect]
     Active Substance: IXAZOMIB
     Indication: Plasma cell myeloma
     Dosage: 3 MILLIGRAM
     Route: 048
     Dates: start: 20220918

REACTIONS (6)
  - Pneumonia [Unknown]
  - Platelet count decreased [Unknown]
  - Rhinorrhoea [Unknown]
  - Cough [Unknown]
  - Drug intolerance [Unknown]
  - Off label use [Unknown]
